FAERS Safety Report 6643344-5 (Version None)
Quarter: 2010Q1

REPORT INFORMATION
  Report Type: 
  Country: None (occurrence: None)
  Receive Date: 20100319
  Receipt Date: 20100305
  Transmission Date: 20100710
  Serious: Yes (Other)
  Sender: FDA-Public Use
  Company Number: US-CELGENEUS-163-20785-10030804

PATIENT

DRUGS (2)
  1. THALOMID [Suspect]
     Indication: NEUROENDOCRINE CARCINOMA
     Route: 048
  2. TEMOZOLOMIDE [Suspect]
     Indication: NEUROENDOCRINE CARCINOMA
     Route: 065

REACTIONS (6)
  - CARDIOMYOPATHY [None]
  - DISEASE PROGRESSION [None]
  - EMBOLISM VENOUS [None]
  - LIVER FUNCTION TEST ABNORMAL [None]
  - LYMPHOPENIA [None]
  - NEUROPATHY PERIPHERAL [None]
